FAERS Safety Report 10359144 (Version 1)
Quarter: 2014Q3

REPORT INFORMATION
  Report Type: Spontaneous
  Country: US (occurrence: None)
  Receive Date: 20140731
  Receipt Date: 20140731
  Transmission Date: 20150326
  Serious: Yes (Other)
  Sender: FDA-Public Use
  Company Number: None

PATIENT
  Age: 55 Year
  Sex: Female
  Weight: 78.02 kg

DRUGS (9)
  1. IMITREX [Concomitant]
     Active Substance: SUMATRIPTAN\SUMATRIPTAN SUCCINATE
  2. FLONASE [Concomitant]
     Active Substance: FLUTICASONE PROPIONATE
  3. SYNTHROID [Concomitant]
     Active Substance: LEVOTHYROXINE SODIUM
  4. PROBIOTICS [Concomitant]
     Active Substance: PROBIOTICS NOS
  5. TIROSINT [Suspect]
     Active Substance: LEVOTHYROXINE SODIUM
     Indication: AUTOIMMUNE THYROIDITIS
     Dosage: 1 PILL, ORALLY, ON EMPTY STOMACH WITH ONLY WATER FOR AN HOUR AFTERWARD.
     Route: 048
     Dates: start: 20140521, end: 20140718
  6. VITAMIN D [Concomitant]
     Active Substance: CHOLECALCIFEROL
  7. CHILDRENS BENADRYL ALLERGY [Concomitant]
     Active Substance: DIPHENHYDRAMINE HYDROCHLORIDE
  8. FISH OIL [Concomitant]
     Active Substance: FISH OIL
  9. CALCIUM ASCORBATE [Concomitant]
     Active Substance: CALCIUM ASCORBATE

REACTIONS (21)
  - Cough [None]
  - Disturbance in attention [None]
  - Blepharospasm [None]
  - Memory impairment [None]
  - Product substitution issue [None]
  - Weight increased [None]
  - Nasal ulcer [None]
  - Tremor [None]
  - Dry eye [None]
  - Decreased appetite [None]
  - Product quality issue [None]
  - Hyperhidrosis [None]
  - Dizziness [None]
  - Asthenia [None]
  - Malaise [None]
  - Haemorrhage [None]
  - Muscle spasms [None]
  - Alopecia [None]
  - Palpitations [None]
  - Dry throat [None]
  - Nausea [None]

NARRATIVE: CASE EVENT DATE: 20140717
